FAERS Safety Report 11700241 (Version 1)
Quarter: 2015Q4

REPORT INFORMATION
  Report Type: Spontaneous
  Country: US (occurrence: US)
  Receive Date: 20151105
  Receipt Date: 20151105
  Transmission Date: 20160304
  Serious: No
  Sender: FDA-Public Use
  Company Number: US-PFIZER INC-2015350850

PATIENT
  Age: 71 Year
  Sex: Female
  Weight: 78 kg

DRUGS (2)
  1. ADVIL PM [Suspect]
     Active Substance: DIPHENHYDRAMINE CITRATE\IBUPROFEN
     Indication: PAIN IN EXTREMITY
  2. ADVIL PM [Suspect]
     Active Substance: DIPHENHYDRAMINE CITRATE\IBUPROFEN
     Indication: INSOMNIA
     Dosage: 1 DF, 1X/DAY, (AT NIGHT)
     Route: 048
     Dates: start: 201510

REACTIONS (4)
  - Dysphagia [Unknown]
  - Malaise [Unknown]
  - Product difficult to swallow [Unknown]
  - Foreign body [Unknown]

NARRATIVE: CASE EVENT DATE: 201510
